FAERS Safety Report 6226049-4 (Version None)
Quarter: 2009Q2

REPORT INFORMATION
  Report Type: 
  Country: None (occurrence: None)
  Receive Date: 20090612
  Receipt Date: 20090514
  Transmission Date: 20091009
  Serious: No
  Sender: FDA-Public Use
  Company Number: US-BAYER-200920732NA

PATIENT
  Age: 87 Year
  Sex: Female
  Weight: 91 kg

DRUGS (3)
  1. CIPRO [Suspect]
     Indication: BRONCHITIS
     Dosage: UNIT DOSE: 500 MG
     Dates: start: 20090512
  2. CIPRO [Suspect]
     Dosage: UNIT DOSE: 500 MG
     Dates: start: 20090512
  3. CIPRO [Suspect]
     Dosage: UNIT DOSE: 500 MG
     Dates: start: 20090511

REACTIONS (8)
  - ABDOMINAL PAIN UPPER [None]
  - ASTHENIA [None]
  - CONSTIPATION [None]
  - DIARRHOEA [None]
  - DIZZINESS [None]
  - GAIT DISTURBANCE [None]
  - NAUSEA [None]
  - RENAL PAIN [None]
